FAERS Safety Report 8978017 (Version 2)
Quarter: 2013Q1

REPORT INFORMATION
  Report Type: Spontaneous
  Country: JP (occurrence: JP)
  Receive Date: 20121220
  Receipt Date: 20130102
  Transmission Date: 20140127
  Serious: Yes (Death)
  Sender: FDA-Public Use
  Company Number: JP-NAPPMUNDI-GBR-2012-0012455

PATIENT
  Age: 53 Year
  Sex: Male

DRUGS (6)
  1. BUPRENORPHINE TRANSDERMAL SYSTEM [Suspect]
     Indication: PAIN
     Dosage: 10 MCG, Q1H
     Route: 062
     Dates: start: 20120425
  2. BUPRENORPHINE TRANSDERMAL SYSTEM [Suspect]
     Indication: INTERVERTEBRAL DISC PROTRUSION
     Dosage: 5 MCG, Q1H
     Route: 062
     Dates: start: 20120131
  3. BUPRENORPHINE TRANSDERMAL SYSTEM [Suspect]
     Indication: INTERVERTEBRAL DISC PROTRUSION
     Dosage: 10 MCG, Q1H
     Route: 062
     Dates: end: 20111117
  4. BUPRENORPHINE TRANSDERMAL SYSTEM [Suspect]
     Dosage: 5 MCG, Q1H
     Route: 062
     Dates: start: 20110804
  5. NEUROTROPHIN [Concomitant]
  6. LIPLE [Concomitant]
     Route: 042

REACTIONS (1)
  - Death [Fatal]
